FAERS Safety Report 7107517-X (Version None)
Quarter: 2010Q4

REPORT INFORMATION
  Report Type: 
  Country: None (occurrence: None)
  Receive Date: 20101117
  Receipt Date: 20101104
  Transmission Date: 20110411
  Serious: Yes (Other)
  Sender: FDA-Public Use
  Company Number: TR-JNJFOC-20101104854

PATIENT
  Age: 15 Year
  Sex: Male

DRUGS (19)
  1. METHYLPHENIDATE HCL [Suspect]
     Indication: ATTENTION DEFICIT/HYPERACTIVITY DISORDER
     Route: 048
  2. METHYLPHENIDATE HCL [Suspect]
     Route: 048
  3. METHYLPHENIDATE HCL [Suspect]
     Route: 048
  4. METHYLPHENIDATE HCL [Suspect]
     Route: 048
  5. FLUOXETINE [Suspect]
     Indication: OBSESSIVE-COMPULSIVE DISORDER
     Route: 065
  6. FLUOXETINE [Suspect]
     Route: 065
  7. FLUVOXAMINE [Suspect]
     Indication: OBSESSIVE-COMPULSIVE DISORDER
     Route: 065
  8. FLUVOXAMINE [Suspect]
     Route: 065
  9. FLUVOXAMINE [Suspect]
     Route: 065
  10. QUETIAPINE [Suspect]
     Indication: OBSESSIVE-COMPULSIVE DISORDER
     Route: 065
  11. QUETIAPINE [Suspect]
     Route: 065
  12. SERTRALINE HYDROCHLORIDE [Suspect]
     Indication: OBSESSIVE-COMPULSIVE DISORDER
     Route: 065
  13. SERTRALINE HYDROCHLORIDE [Suspect]
     Route: 065
  14. CLOMIPRAMINE HCL [Suspect]
     Indication: OBSESSIVE-COMPULSIVE DISORDER
     Route: 065
  15. CLOMIPRAMINE HCL [Suspect]
     Route: 065
  16. ATOMOXETINE HCL [Suspect]
     Indication: OBSESSIVE-COMPULSIVE DISORDER
     Route: 065
  17. RISPERIDONE [Concomitant]
     Indication: OBSESSIVE-COMPULSIVE DISORDER
     Route: 065
  18. RISPERIDONE [Concomitant]
     Route: 065
  19. RISPERIDONE [Concomitant]
     Route: 065

REACTIONS (1)
  - OBSESSIVE-COMPULSIVE DISORDER [None]
